FAERS Safety Report 9839258 (Version 2)
Quarter: 2014Q1

REPORT INFORMATION
  Report Type: Spontaneous
  Country: US (occurrence: None)
  Receive Date: 20140116
  Receipt Date: 20140128
  Transmission Date: 20141002
  Serious: Yes (Life-Threatening, Hospitalization, Other)
  Sender: FDA-Public Use
  Company Number: ADR-2012-00199

PATIENT
  Sex: Female

DRUGS (1)
  1. BACLOFEN [Suspect]
     Indication: PAIN
     Dosage: 395.3 MCG/DAY

REACTIONS (6)
  - Overdose [None]
  - Muscular weakness [None]
  - Dizziness [None]
  - Unresponsive to stimuli [None]
  - Pain [None]
  - Injury [None]
